FAERS Safety Report 20306543 (Version 1)
Quarter: 2022Q1

REPORT INFORMATION
  Report Type: Spontaneous
  Country: CN (occurrence: CN)
  Receive Date: 20220106
  Receipt Date: 20220106
  Transmission Date: 20220423
  Serious: Yes (Hospitalization)
  Sender: FDA-Public Use
  Company Number: CN-PFIZER INC-202101878427

PATIENT
  Age: 54 Year
  Sex: Male
  Weight: 95.8 kg

DRUGS (2)
  1. METHOTREXATE [Suspect]
     Active Substance: METHOTREXATE
     Indication: Chemotherapy
     Dosage: 3000 MG/M2, 1X/DAY
     Route: 041
     Dates: start: 20211205, end: 20211206
  2. LEUCOVORIN CALCIUM [Concomitant]
     Active Substance: LEUCOVORIN CALCIUM
     Dosage: UNK (RESCUE)
     Dates: start: 202112

REACTIONS (2)
  - Blood creatinine increased [Recovering/Resolving]
  - Drug clearance decreased [Recovering/Resolving]

NARRATIVE: CASE EVENT DATE: 20211201
